FAERS Safety Report 5839164-1 (Version None)
Quarter: 2008Q3

REPORT INFORMATION
  Report Type: 
  Country: None (occurrence: None)
  Receive Date: 20080808
  Receipt Date: 20080731
  Transmission Date: 20090109
  Serious: Yes (Congenital Anomaly, Other)
  Sender: FDA-Public Use
  Company Number: AU-PFIZER INC-2008053488

PATIENT
  Sex: Female
  Weight: 109 kg

DRUGS (5)
  1. ZELDOX (CAPSULES) [Suspect]
     Indication: SCHIZOAFFECTIVE DISORDER
     Dosage: DAILY DOSE:160MG
     Route: 048
     Dates: start: 20080512, end: 20080601
  2. EFFEXOR [Concomitant]
     Dosage: DAILY DOSE:150MG
     Route: 048
  3. EPILIM [Concomitant]
     Dosage: DAILY DOSE:500MG
     Route: 048
  4. MICARDIS [Concomitant]
     Dosage: DAILY DOSE:80MG
     Route: 048
  5. SOMAC [Concomitant]
     Dosage: DAILY DOSE:40MG
     Route: 048

REACTIONS (9)
  - DYSPHAGIA [None]
  - DYSPNOEA [None]
  - LARYNGOSPASM [None]
  - LOSS OF CONSCIOUSNESS [None]
  - RETCHING [None]
  - SEDATION [None]
  - SWELLING [None]
  - SYNCOPE [None]
  - URINARY INCONTINENCE [None]
